FAERS Safety Report 8451040-7 (Version None)
Quarter: 2012Q2

REPORT INFORMATION
  Report Type: 
  Country: None (occurrence: None)
  Receive Date: 20120620
  Receipt Date: 20120620
  Transmission Date: 20120825
  Serious: Yes (Hospitalization, Other)
  Sender: FDA-Public Use
  Company Number: CA-PFIZER INC-2009US-29081

PATIENT
  Age: 71 Year
  Sex: Male

DRUGS (6)
  1. METOPROLOL TARTRATE [Suspect]
     Indication: ARRHYTHMIA
     Dosage: 100 MG, 2X/DAY
     Route: 065
  2. ATENOLOL [Suspect]
     Indication: ARRHYTHMIA
     Dosage: 100 MG, 1X/DAY
     Route: 065
  3. CILAZAPRIL [Suspect]
     Dosage: 5 MG, 1X/DAY
     Route: 065
  4. DILTIAZEM HCL [Suspect]
     Indication: ARRHYTHMIA
     Dosage: 240 MG, 1X/DAY
     Route: 065
  5. DILTIAZEM [Suspect]
     Indication: ARRHYTHMIA
     Dosage: 300 MG, 1X/DAY
     Route: 065
  6. VERAPAMIL HCL [Suspect]
     Indication: ARRHYTHMIA
     Dosage: 240 MG, 1X/DAY
     Route: 048

REACTIONS (9)
  - ATRIAL FIBRILLATION [None]
  - ASTHENIA [None]
  - DYSPNOEA [None]
  - FATIGUE [None]
  - HYPOTENSION [None]
  - PACEMAKER GENERATED RHYTHM [None]
  - HEART RATE INCREASED [None]
  - CARDIOGENIC SHOCK [None]
  - PALPITATIONS [None]
